FAERS Safety Report 13134086 (Version 1)
Quarter: 2017Q1

REPORT INFORMATION
  Report Type: Spontaneous
  Country: FR (occurrence: FR)
  Receive Date: 20170120
  Receipt Date: 20170120
  Transmission Date: 20170428
  Serious: Yes (Other)
  Sender: FDA-Public Use
  Company Number: FR-009507513-1701FRA007590

PATIENT
  Age: 44 Year
  Sex: Female

DRUGS (3)
  1. MAXALT [Suspect]
     Active Substance: RIZATRIPTAN BENZOATE
     Indication: MIGRAINE
     Dosage: UNK
     Route: 048
  2. EFFEXOR [Interacting]
     Active Substance: VENLAFAXINE HYDROCHLORIDE
     Dosage: 75 MG, 1 IN THE MORNING
     Dates: end: 20161231
  3. EFFEXOR [Interacting]
     Active Substance: VENLAFAXINE HYDROCHLORIDE
     Dosage: 37.5 MG, UNK
     Dates: start: 201701

REACTIONS (11)
  - Pain [Unknown]
  - Somnolence [Unknown]
  - Migraine [Unknown]
  - Blood pressure abnormal [Unknown]
  - Drug interaction [Unknown]
  - Product use issue [Unknown]
  - Migraine [Recovered/Resolved]
  - Drug-induced liver injury [Unknown]
  - Ingrowing nail [Unknown]
  - Malaise [Unknown]
  - Pyrexia [Unknown]

NARRATIVE: CASE EVENT DATE: 2016
